FAERS Safety Report 7676855-4 (Version None)
Quarter: 2011Q3

REPORT INFORMATION
  Report Type: 
  Country: None (occurrence: None)
  Receive Date: 20110810
  Receipt Date: 20110810
  Transmission Date: 20111222
  Serious: Yes (Hospitalization)
  Sender: FDA-Public Use
  Company Number: None

PATIENT
  Age: 55 Year
  Sex: Male
  Weight: 94.4 kg

DRUGS (1)
  1. PHENYTOIN [Suspect]
     Indication: CONVULSION
     Dosage: 300MG HS PO
     Route: 048
     Dates: start: 20110131, end: 20110511

REACTIONS (6)
  - LEUKOCYTOSIS [None]
  - HEPATIC ENZYME INCREASED [None]
  - ATAXIA [None]
  - CONFUSIONAL STATE [None]
  - RASH [None]
  - EOSINOPHILIA [None]
